FAERS Safety Report 20479719 (Version 1)
Quarter: 2022Q1

REPORT INFORMATION
  Report Type: Spontaneous
  Country: US (occurrence: None)
  Receive Date: 20220215
  Receipt Date: 20220215
  Transmission Date: 20220424
  Serious: Yes (Hospitalization)
  Sender: FDA-Public Use
  Company Number: None

PATIENT
  Sex: Female

DRUGS (1)
  1. ENBREL [Suspect]
     Active Substance: ETANERCEPT
     Route: 058
     Dates: start: 20210331

REACTIONS (13)
  - Rhinitis [None]
  - Hyperlipidaemia [None]
  - Osteoarthritis [None]
  - Atrial fibrillation [None]
  - Vitamin D deficiency [None]
  - Condition aggravated [None]
  - Therapy interrupted [None]
  - Pain [None]
  - Impaired quality of life [None]
  - Spleen disorder [None]
  - Aortic valve stenosis [None]
  - Mitral valve incompetence [None]
  - Cholangiocarcinoma [None]
